FAERS Safety Report 24793589 (Version 5)
Quarter: 2025Q2

REPORT INFORMATION
  Report Type: Spontaneous
  Country: CA (occurrence: CA)
  Receive Date: 20241231
  Receipt Date: 20250428
  Transmission Date: 20250716
  Serious: Yes (Hospitalization, Other)
  Sender: PFIZER
  Company Number: CA-PFIZER INC-202400334615

PATIENT
  Age: 77 Year
  Sex: Male

DRUGS (1)
  1. VYNDAMAX [Suspect]
     Active Substance: TAFAMIDIS
     Indication: Cardiac amyloidosis
     Dosage: 61 MG, 1X/DAY
     Route: 048
     Dates: start: 20240923, end: 20241211

REACTIONS (10)
  - Cardiac failure [Unknown]
  - Heart rate decreased [Unknown]
  - Chromaturia [Unknown]
  - Faeces discoloured [Unknown]
  - Fatigue [Unknown]
  - Gait disturbance [Unknown]
  - Cough [Recovering/Resolving]
  - Decreased appetite [Recovering/Resolving]
  - Ageusia [Unknown]
  - Vomiting [Unknown]

NARRATIVE: CASE EVENT DATE: 20240101
